FAERS Safety Report 7960719-2 (Version None)
Quarter: 2011Q4

REPORT INFORMATION
  Report Type: 
  Country: None (occurrence: None)
  Receive Date: 20111206
  Receipt Date: 20070409
  Transmission Date: 20120403
  Serious: Yes (Other)
  Sender: FDA-Public Use
  Company Number: PHHY2007BR011392

PATIENT
  Age: 79 Year
  Sex: Male

DRUGS (1)
  1. EXFORGE [Suspect]
     Indication: HYPERTENSION
     Dosage: 1 DF, UNK, 80/5 MG
     Route: 048

REACTIONS (2)
  - OEDEMA PERIPHERAL [None]
  - PHLEBITIS [None]
